FAERS Safety Report 6000997-2 (Version None)
Quarter: 2008Q4

REPORT INFORMATION
  Report Type: 
  Country: None (occurrence: None)
  Receive Date: 20081215
  Receipt Date: 20080207
  Transmission Date: 20090506
  Serious: No
  Sender: FDA-Public Use
  Company Number: US-BRISTOL-MYERS SQUIBB COMPANY-14068852

PATIENT
  Age: 66 Year
  Sex: Male
  Weight: 93 kg

DRUGS (2)
  1. QUESTRAN [Suspect]
     Indication: DIARRHOEA
     Dosage: 2 DOSAGE FORM = 2 TEASPOON, STRENGTH IS 378 G.
     Route: 048
     Dates: start: 20071201
  2. GLUCOPHAGE [Concomitant]

REACTIONS (2)
  - DYSPEPSIA [None]
  - FLATULENCE [None]
